FAERS Safety Report 9153573 (Version 2)
Quarter: 2013Q2

REPORT INFORMATION
  Report Type: Spontaneous
  Country: US (occurrence: US)
  Receive Date: 20130311
  Receipt Date: 20130422
  Transmission Date: 20140414
  Serious: Yes (Other)
  Sender: FDA-Public Use
  Company Number: PHEH2013US005194

PATIENT
  Sex: Male

DRUGS (14)
  1. EXELON PATCH [Suspect]
     Dosage: 9.5 MG, QD
     Route: 062
  2. METOPROLOL [Suspect]
  3. CITALOPRAM [Suspect]
     Dosage: 40 MG NIGHTLY, UNK
  4. CLONIDINE [Suspect]
  5. DILTIAZEM [Suspect]
     Dosage: TWICE IN THE MORNING AND ONCE AT NIG, UNK
  6. DILTIAZEM [Suspect]
     Dosage: ONE AT NIGHT, UNK
  7. LASIX [Suspect]
  8. RANITIDINE [Concomitant]
     Dosage: UNK
  9. ICAPS [Concomitant]
  10. ASPIRIN [Concomitant]
  11. MELOXICAM [Concomitant]
     Indication: ARTHRITIS
  12. SIMVASTATIN [Concomitant]
  13. NAMENDA [Concomitant]
     Dosage: 20 MG, DAILY
  14. LISINOPRIL HCTZ [Concomitant]
     Dosage: 12.5 MG, BID

REACTIONS (7)
  - Macular degeneration [Unknown]
  - Condition aggravated [Unknown]
  - Anger [Unknown]
  - Memory impairment [Unknown]
  - Burning sensation [Unknown]
  - Somnolence [Unknown]
  - Fatigue [Unknown]
